FAERS Safety Report 13166357 (Version 1)
Quarter: 2017Q1

REPORT INFORMATION
  Report Type: Spontaneous
  Country: FR (occurrence: FR)
  Receive Date: 20170131
  Receipt Date: 20170131
  Transmission Date: 20170428
  Serious: Yes (Hospitalization)
  Sender: FDA-Public Use
  Company Number: FR-CONCORDIA PHARMACEUTICALS INC.-E2B_00008003

PATIENT
  Age: 31 Year
  Sex: Male

DRUGS (2)
  1. LAMICTAL [Suspect]
     Active Substance: LAMOTRIGINE
     Indication: EPILEPSY
     Route: 048
  2. ZONEGRAN [Suspect]
     Active Substance: ZONISAMIDE
     Indication: EPILEPSY
     Route: 048
     Dates: end: 20170109

REACTIONS (1)
  - Renal colic [Unknown]

NARRATIVE: CASE EVENT DATE: 201512
